FAERS Safety Report 6134100-5 (Version None)
Quarter: 2009Q1

REPORT INFORMATION
  Report Type: 
  Country: None (occurrence: None)
  Receive Date: 20090326
  Receipt Date: 20090316
  Transmission Date: 20090719
  Serious: Yes (Hospitalization)
  Sender: FDA-Public Use
  Company Number: FR-ELI_LILLY_AND_COMPANY-FR200902000336

PATIENT
  Age: 80 Year
  Sex: Male
  Weight: 80 kg

DRUGS (7)
  1. ZYPREXA [Suspect]
     Indication: BIPOLAR DISORDER
     Dosage: 5 MG, DAILY (1/D)
     Route: 048
     Dates: start: 20040101
  2. TRILEPTAL [Concomitant]
     Indication: FACIAL NEURALGIA
     Route: 048
  3. XANAX [Concomitant]
     Indication: ANXIETY
     Dosage: 0.5 MG, DAILY (1/D)
     Route: 048
  4. VALIUM [Concomitant]
     Indication: ANXIETY
     Route: 048
  5. ZOLADEX [Concomitant]
     Indication: PROSTATE CANCER
  6. ZOXAN LP [Concomitant]
     Indication: PROSTATE CANCER
     Route: 048
  7. NUCTALON [Concomitant]
     Indication: FACIAL NEURALGIA
     Route: 048

REACTIONS (1)
  - PULMONARY EMBOLISM [None]
